FAERS Safety Report 5084526-6 (Version None)
Quarter: 2006Q3

REPORT INFORMATION
  Report Type: 
  Country: None (occurrence: None)
  Receive Date: 20060814
  Receipt Date: 20060728
  Transmission Date: 20061208
  Serious: Yes (Hospitalization)
  Sender: FDA-Public Use
  Company Number: ZA200608000035

PATIENT
  Sex: Male

DRUGS (2)
  1. CIALIS [Suspect]
     Indication: ERECTILE DYSFUNCTION
     Dosage: 20 MG AS NEEDED ORAL
     Route: 048
     Dates: start: 20060101, end: 20060101
  2. AMILORETIC (AMILORIDE, HYDROCHLOROTHIAZIDE) [Concomitant]

REACTIONS (2)
  - ARRHYTHMIA [None]
  - FALL [None]
